FAERS Safety Report 7819573-1 (Version None)
Quarter: 2011Q4

REPORT INFORMATION
  Report Type: 
  Country: None (occurrence: None)
  Receive Date: 20111013
  Receipt Date: 20110930
  Transmission Date: 20120403
  Serious: Yes (Other)
  Sender: FDA-Public Use
  Company Number: 2011P1009092

PATIENT
  Age: 90 Year
  Sex: Female

DRUGS (5)
  1. POTASSIUM UNSPECIFIED [Concomitant]
  2. ATENOLOL [Concomitant]
  3. NOVASC [Concomitant]
  4. FLUCONONIDE TOPICAL SOLUTION USP 0.05% (NO PREF. NAME) [Suspect]
     Indication: ALOPECIA
     Dosage: ;QD;TOP
     Route: 061
     Dates: start: 20110801, end: 20110901
  5. STATIN [Concomitant]

REACTIONS (3)
  - OFF LABEL USE [None]
  - HALLUCINATION, AUDITORY [None]
  - INSOMNIA [None]
